FAERS Safety Report 8239293-1 (Version None)
Quarter: 2012Q1

REPORT INFORMATION
  Report Type: 
  Country: None (occurrence: None)
  Receive Date: 20120328
  Receipt Date: 20120314
  Transmission Date: 20120608
  Serious: Yes (Other)
  Sender: FDA-Public Use
  Company Number: PL-AMGEN-POLSP2012018063

PATIENT
  Age: 46 Year
  Sex: Female

DRUGS (1)
  1. ENBREL [Suspect]
     Indication: RHEUMATOID ARTHRITIS
     Dosage: 50 MG, WEEKLY
     Route: 058
     Dates: start: 20111128, end: 20120215

REACTIONS (4)
  - INJECTION SITE EXTRAVASATION [None]
  - INJECTION SITE EXFOLIATION [None]
  - INJECTION SITE ERYTHEMA [None]
  - INJECTION SITE HYPERSENSITIVITY [None]
